FAERS Safety Report 11806401 (Version 1)
Quarter: 2015Q4

REPORT INFORMATION
  Report Type: Spontaneous
  Country: FR (occurrence: FR)
  Receive Date: 20151207
  Receipt Date: 20151207
  Transmission Date: 20160305
  Serious: Yes (Other)
  Sender: FDA-Public Use
  Company Number: FR-TEVA-609615ISR

PATIENT
  Age: 30 Year
  Sex: Female

DRUGS (2)
  1. IBUPROFEN. [Concomitant]
     Active Substance: IBUPROFEN
     Indication: INTERVERTEBRAL DISC PROTRUSION
     Route: 065
  2. COPAXONE [Suspect]
     Active Substance: GLATIRAMER ACETATE
     Dosage: 20 MILLIGRAM/MILLILITERS DAILY; WITH C-SYNC BETWEEN 8 AND 12 MM
     Route: 058
     Dates: start: 20151102, end: 201511

REACTIONS (12)
  - Fatigue [Not Recovered/Not Resolved]
  - Gait disturbance [Not Recovered/Not Resolved]
  - Injection site erythema [Unknown]
  - Vomiting [Recovered/Resolved]
  - Injection site swelling [Not Recovered/Not Resolved]
  - Pyrexia [Unknown]
  - Chills [Unknown]
  - Injection site pain [Unknown]
  - Headache [Unknown]
  - Injection site induration [Not Recovered/Not Resolved]
  - Hypothermia [Unknown]
  - Injection site vesicles [Unknown]

NARRATIVE: CASE EVENT DATE: 201511
